FAERS Safety Report 8530446-1 (Version None)
Quarter: 2012Q3

REPORT INFORMATION
  Report Type: 
  Country: None (occurrence: None)
  Receive Date: 20120723
  Receipt Date: 20120716
  Transmission Date: 20120928
  Serious: Yes (Death, Hospitalization, Other)
  Sender: FDA-Public Use
  Company Number: MX-SANOFI-AVENTIS-2012SA050386

PATIENT
  Age: 64 Year
  Sex: Female

DRUGS (1)
  1. LANTUS [Suspect]
     Indication: TYPE 2 DIABETES MELLITUS
     Dosage: DOSE-24 IU/ 24 HOURS OR 48 IU/ DAY (24 IU IN THE MORNING AND 24 IU AT NIGHT)
     Route: 058
     Dates: start: 20090101

REACTIONS (6)
  - RENAL PAIN [None]
  - BACK PAIN [None]
  - GENERALISED OEDEMA [None]
  - CARDIO-RESPIRATORY ARREST [None]
  - RENAL FAILURE [None]
  - HYPERGLYCAEMIA [None]
